FAERS Safety Report 14163702 (Version 1)
Quarter: 2017Q4

REPORT INFORMATION
  Report Type: Report from Study
  Country: SK (occurrence: SK)
  Receive Date: 20171106
  Receipt Date: 20171106
  Transmission Date: 20180321
  Serious: Yes (Hospitalization)
  Sender: FDA-Public Use
  Company Number: PHHO2016SK010448

PATIENT
  Age: 50 Year
  Sex: Male
  Weight: 106.7 kg

DRUGS (5)
  1. ACZ885 [Suspect]
     Active Substance: CANAKINUMAB
     Indication: CARDIOVASCULAR EVENT PROPHYLAXIS
     Dosage: 50 MG, QUARTERLY
     Route: 058
     Dates: start: 20121220, end: 20160620
  2. ANOPYRIN [Concomitant]
     Active Substance: ASPIRIN
     Indication: PROPHYLAXIS
     Dosage: 100 MG, QD
     Route: 048
     Dates: start: 20111107
  3. AMLOPIN [Concomitant]
     Active Substance: AMLODIPINE BESYLATE
     Indication: HYPERTENSION
     Dosage: 5 MG, QD
     Route: 048
     Dates: start: 20120924
  4. NEBILET [Concomitant]
     Active Substance: NEBIVOLOL
     Indication: HYPERTENSION
     Dosage: 5 MG, QD
     Route: 048
     Dates: start: 20120924
  5. PRESTARIUM [Concomitant]
     Active Substance: PERINDOPRIL
     Indication: HYPERTENSION
     Dosage: 10/2.5 MG QD
     Route: 048
     Dates: start: 20120912

REACTIONS (1)
  - Orchitis [Recovered/Resolved]

NARRATIVE: CASE EVENT DATE: 20160714
